FAERS Safety Report 5690487-9 (Version None)
Quarter: 2008Q1

REPORT INFORMATION
  Report Type: 
  Country: None (occurrence: None)
  Receive Date: 20080331
  Receipt Date: 20080331
  Transmission Date: 20080703
  Serious: Yes (Other)
  Sender: FDA-Public Use
  Company Number: None

PATIENT
  Age: 3 Year
  Sex: Male
  Weight: 17.2367 kg

DRUGS (2)
  1. SINGULAIR [Suspect]
     Indication: CHRONIC SINUSITIS
     Dosage: 4MG   1/DAY  PO
     Route: 048
     Dates: start: 20060515, end: 20080328
  2. SINGULAIR [Suspect]
     Indication: HYPERSENSITIVITY
     Dosage: 4MG   1/DAY  PO
     Route: 048
     Dates: start: 20060515, end: 20080328

REACTIONS (19)
  - ABNORMAL BEHAVIOUR [None]
  - AGGRESSION [None]
  - CRYING [None]
  - DYSKINESIA [None]
  - EMOTIONAL DISORDER [None]
  - FALL [None]
  - GAIT DISTURBANCE [None]
  - ILL-DEFINED DISORDER [None]
  - INITIAL INSOMNIA [None]
  - IRRITABILITY [None]
  - MIDDLE INSOMNIA [None]
  - MOOD ALTERED [None]
  - MUSCLE SPASMS [None]
  - ORAL INTAKE REDUCED [None]
  - POISONING [None]
  - RESTLESSNESS [None]
  - SCHOOL REFUSAL [None]
  - SOMNOLENCE [None]
  - VOMITING [None]
